FAERS Safety Report 7029290-6 (Version None)
Quarter: 2010Q4

REPORT INFORMATION
  Report Type: 
  Country: None (occurrence: None)
  Receive Date: 20101005
  Receipt Date: 20100921
  Transmission Date: 20110411
  Serious: Yes (Hospitalization)
  Sender: FDA-Public Use
  Company Number: PHHY2010JP59837

PATIENT
  Sex: Female

DRUGS (6)
  1. AFINITOR [Suspect]
     Indication: RENAL CELL CARCINOMA
     Dosage: UNK
     Route: 048
     Dates: start: 20100716
  2. SUNITINIB MALATE [Concomitant]
     Indication: RENAL CELL CARCINOMA
     Dosage: 25 MG, UNK
     Route: 048
     Dates: start: 20100216, end: 20100506
  3. GASLON [Concomitant]
     Dosage: 4 MG, UNK
     Route: 048
     Dates: start: 20100615
  4. OLMETEC [Concomitant]
     Dosage: 20 MG, UNK
     Route: 048
     Dates: start: 20100323, end: 20100801
  5. LASIX [Concomitant]
     Dosage: 20 MG, UNK
     Route: 048
     Dates: start: 20100510
  6. AMLODIPINE BESYLATE [Concomitant]
     Dosage: 5 MG, UNK
     Route: 048
     Dates: start: 20100607, end: 20100812

REACTIONS (2)
  - OEDEMA PERIPHERAL [None]
  - THROMBOPHLEBITIS [None]
